FAERS Safety Report 8618619-0 (Version None)
Quarter: 2012Q3

REPORT INFORMATION
  Report Type: 
  Country: None (occurrence: None)
  Receive Date: 20120814
  Receipt Date: 20120814
  Transmission Date: 20120928
  Serious: Yes (Hospitalization, Other)
  Sender: FDA-Public Use
  Company Number: None

PATIENT
  Age: 31 Year
  Sex: Female
  Weight: 76.2043 kg

DRUGS (1)
  1. DOXYCYCLINE HYCLATE [Suspect]
     Indication: ACNE
     Dosage: 100 MG	2X DAILY PO
     Route: 048
     Dates: start: 20120711, end: 20120727

REACTIONS (7)
  - CHEST PAIN [None]
  - SENSATION OF FOREIGN BODY [None]
  - STRESS [None]
  - ABDOMINAL DISTENSION [None]
  - DYSPEPSIA [None]
  - DYSPNOEA [None]
  - HYPOAESTHESIA [None]
